FAERS Safety Report 8354806-7 (Version None)
Quarter: 2012Q2

REPORT INFORMATION
  Report Type: 
  Country: None (occurrence: None)
  Receive Date: 20120511
  Receipt Date: 20120506
  Transmission Date: 20120825
  Serious: Yes (Hospitalization)
  Sender: FDA-Public Use
  Company Number: US-AMGEN-USASP2012016000

PATIENT
  Age: 80 Year
  Sex: Female

DRUGS (1)
  1. ENBREL [Suspect]
     Indication: RHEUMATOID ARTHRITIS
     Dosage: 50 MG, QWK
     Dates: start: 20001001

REACTIONS (5)
  - JOINT DESTRUCTION [None]
  - BONE LOSS [None]
  - GAIT DISTURBANCE [None]
  - INJECTION SITE PRURITUS [None]
  - KNEE ARTHROPLASTY [None]
